FAERS Safety Report 6283414-7 (Version None)
Quarter: 2009Q3

REPORT INFORMATION
  Report Type: 
  Country: None (occurrence: None)
  Receive Date: 20090724
  Receipt Date: 20090402
  Transmission Date: 20100115
  Serious: No
  Sender: FDA-Public Use
  Company Number: US-ALEXION-A200900228

PATIENT
  Sex: Female

DRUGS (3)
  1. SOLIRIS [Suspect]
     Indication: PAROXYSMAL NOCTURNAL HAEMOGLOBINURIA
     Dosage: UNK
     Route: 042
     Dates: start: 20081101, end: 20081101
  2. SOLIRIS [Suspect]
     Dosage: UNK
     Dates: start: 20090101
  3. ACETAMINOPHEN [Concomitant]
     Indication: HEADACHE
     Dosage: UNK
     Route: 048

REACTIONS (1)
  - PREGNANCY [None]
